FAERS Safety Report 23557937 (Version 2)
Quarter: 2024Q1

REPORT INFORMATION
  Report Type: Spontaneous
  Country: US (occurrence: US)
  Receive Date: 20240223
  Receipt Date: 20240304
  Transmission Date: 20240410
  Serious: Yes (Hospitalization, Other)
  Sender: FDA-Public Use
  Company Number: US-BRISTOL-MYERS SQUIBB COMPANY-2024-029039

PATIENT
  Age: 65 Year
  Sex: Female

DRUGS (1)
  1. LENALIDOMIDE [Suspect]
     Active Substance: LENALIDOMIDE
     Indication: Plasma cell myeloma
     Route: 048
     Dates: start: 20231116

REACTIONS (8)
  - Somnolence [Recovered/Resolved]
  - Incoherent [Recovered/Resolved]
  - Off label use [Unknown]
  - Myocardial injury [Recovered/Resolved]
  - Lung disorder [Recovered/Resolved]
  - Peripheral swelling [Recovered/Resolved]
  - Confusional state [Recovered/Resolved]
  - Intentional dose omission [Unknown]

NARRATIVE: CASE EVENT DATE: 20240218
